FAERS Safety Report 19928791 (Version 1)
Quarter: 2021Q4

REPORT INFORMATION
  Report Type: Spontaneous
  Country: DE (occurrence: DE)
  Receive Date: 20211007
  Receipt Date: 20211007
  Transmission Date: 20220303
  Serious: Yes (Other)
  Sender: FDA-Public Use
  Company Number: DE-NORTHSTAR HEALTHCARE HOLDINGS-DE-2021NSR000103

PATIENT
  Age: 41 Year
  Sex: Male

DRUGS (1)
  1. ALLOPURINOL [Suspect]
     Active Substance: ALLOPURINOL
     Indication: Hyperuricaemia
     Dosage: 300 MG, QD
     Route: 065

REACTIONS (7)
  - Hepatic failure [Unknown]
  - Multiple organ dysfunction syndrome [Unknown]
  - Staphylococcal infection [Unknown]
  - Encephalopathy [Unknown]
  - Intensive care unit acquired weakness [Unknown]
  - Drug hypersensitivity [Recovered/Resolved]
  - Renal failure [Unknown]
